FAERS Safety Report 4326138-5 (Version None)
Quarter: 2004Q1

REPORT INFORMATION
  Report Type: 
  Country: None (occurrence: None)
  Receive Date: 20040324
  Receipt Date: 20040310
  Transmission Date: 20041129
  Serious: Yes (Other)
  Sender: FDA-Public Use
  Company Number: 2004017398

PATIENT
  Sex: Female

DRUGS (2)
  1. PHENYTOIN SODIUM [Suspect]
     Indication: EPILEPSY
     Dosage: 400 MG (DAILY), ORAL
     Route: 048
  2. VENLAFAXINE (VENLAFAXINE) [Concomitant]

REACTIONS (2)
  - DRUG TOXICITY [None]
  - RASH [None]
